FAERS Safety Report 5865562-6 (Version None)
Quarter: 2008Q3

REPORT INFORMATION
  Report Type: 
  Country: None (occurrence: None)
  Receive Date: 20080829
  Receipt Date: 20080807
  Transmission Date: 20090109
  Serious: No
  Sender: FDA-Public Use
  Company Number: US-ABBOTT-08P-163-0469362-00

PATIENT
  Sex: Female
  Weight: 69.462 kg

DRUGS (8)
  1. SIMCOR [Suspect]
     Indication: CORONARY ARTERY DISEASE
     Dosage: 1000/20 MG DAILY
     Dates: start: 20080725
  2. SIMCOR [Suspect]
     Dosage: 500/20 MG DAILY
     Dates: start: 20080715, end: 20080725
  3. AMLODIPINE [Concomitant]
     Indication: HYPERTENSION
     Route: 048
  4. CARVILOLOL [Concomitant]
     Indication: DRUG USE FOR UNKNOWN INDICATION
     Route: 048
  5. LEVOTHYROXINE [Concomitant]
     Indication: HYPOTHYROIDISM
     Route: 048
  6. DIOVAN HCT [Concomitant]
     Indication: HYPERTENSION
     Route: 048
  7. ACETYLSALICYLIC ACID SRT [Concomitant]
     Indication: FLUSHING
     Route: 048
  8. ACETYLSALICYLIC ACID SRT [Concomitant]
     Indication: PROPHYLAXIS

REACTIONS (2)
  - FLUSHING [None]
  - PRURITUS [None]
